FAERS Safety Report 6507233-9 (Version None)
Quarter: 2009Q4

REPORT INFORMATION
  Report Type: 
  Country: None (occurrence: None)
  Receive Date: 20091221
  Receipt Date: 20091214
  Transmission Date: 20100525
  Serious: Yes (Death, Hospitalization, Other)
  Sender: FDA-Public Use
  Company Number: PHHY2009GB21805

PATIENT
  Age: 74 Year
  Sex: Male

DRUGS (2)
  1. CLOZAPINE [Suspect]
     Dosage: UNK
     Route: 048
     Dates: start: 20060205, end: 20090105
  2. ZAPONEX [Suspect]
     Dosage: UNK
     Dates: start: 20090106

REACTIONS (12)
  - ABDOMINAL ADHESIONS [None]
  - DYSPNOEA [None]
  - GASTRIC DILATATION [None]
  - GENERAL PHYSICAL CONDITION ABNORMAL [None]
  - INTESTINAL DILATATION [None]
  - INTESTINAL ISCHAEMIA [None]
  - INTESTINAL OBSTRUCTION [None]
  - MUCOSAL INFLAMMATION [None]
  - PNEUMONIA [None]
  - PULMONARY OEDEMA [None]
  - VOLVULUS [None]
  - VOMITING [None]
